FAERS Safety Report 5916921-4 (Version None)
Quarter: 2008Q4

REPORT INFORMATION
  Report Type: 
  Country: None (occurrence: None)
  Receive Date: 20081013
  Receipt Date: 20081007
  Transmission Date: 20090506
  Serious: Yes (Other)
  Sender: FDA-Public Use
  Company Number: US-B.I. PHARMACEUTICALS,INC./RIDGEFIELD-2008-BP-15561PF

PATIENT
  Sex: Female
  Weight: 54 kg

DRUGS (12)
  1. SPIRIVA [Suspect]
     Dates: end: 20080101
  2. CHANTIX [Suspect]
     Indication: SMOKING CESSATION THERAPY
     Dates: start: 20080101, end: 20080101
  3. PREVACID [Suspect]
     Indication: GASTROOESOPHAGEAL REFLUX DISEASE
     Dates: start: 20080101
  4. ZOCOR [Concomitant]
  5. EVISTA [Concomitant]
  6. NASONEX [Concomitant]
  7. ZYRTEC [Concomitant]
  8. ZOLOFT [Concomitant]
  9. ANTARA [Concomitant]
  10. ONE A DAY VITAMINS [Concomitant]
  11. CALCIUM [Concomitant]
  12. ADVAIR DISKUS 100/50 [Concomitant]

REACTIONS (5)
  - ABNORMAL DREAMS [None]
  - DIABETES MELLITUS [None]
  - DYSPHONIA [None]
  - GASTROOESOPHAGEAL REFLUX DISEASE [None]
  - POLYP [None]
